FAERS Safety Report 9700691 (Version 2)
Quarter: 2013Q4

REPORT INFORMATION
  Report Type: Spontaneous
  Country: IT (occurrence: None)
  Receive Date: 20131119
  Receipt Date: 20131127
  Transmission Date: 20140711
  Serious: Yes (Congenital Anomaly, Other)
  Sender: FDA-Public Use
  Company Number: AUR-APL-2013-09665

PATIENT
  Sex: 0

DRUGS (3)
  1. LAMIVUDINE [Suspect]
     Indication: HIV INFECTION
     Route: 064
  2. ZIDOVUDINE (ZIDOVUDINE) [Suspect]
     Indication: HIV INFECTION
     Route: 064
  3. NELFINAVIR [Suspect]
     Indication: HIV INFECTION
     Route: 064

REACTIONS (2)
  - Atrial septal defect [None]
  - Maternal drugs affecting foetus [None]
